FAERS Safety Report 8826348 (Version 2)
Quarter: 2013Q2

REPORT INFORMATION
  Report Type: Spontaneous
  Country: US (occurrence: US)
  Receive Date: 20121005
  Receipt Date: 20130604
  Transmission Date: 20140414
  Serious: Yes (Other)
  Sender: FDA-Public Use
  Company Number: US-CELGENEUS-163-20785-12092766

PATIENT
  Sex: Male

DRUGS (1)
  1. THALOMID [Suspect]
     Indication: LEPROSY
     Dosage: 200 MILLIGRAM
     Route: 048
     Dates: start: 20111118, end: 20120917

REACTIONS (1)
  - Pregnancy of partner [Unknown]
